FAERS Safety Report 7968296-7 (Version None)
Quarter: 2011Q4

REPORT INFORMATION
  Report Type: 
  Country: None (occurrence: None)
  Receive Date: 20111209
  Receipt Date: 20111206
  Transmission Date: 20120403
  Serious: Yes (Life-Threatening, Hospitalization, Other)
  Sender: FDA-Public Use
  Company Number: PHEH2011US010083

PATIENT
  Sex: Female
  Weight: 77.2 kg

DRUGS (15)
  1. DOLOPHINE HCL [Concomitant]
     Dosage: 10 MG, BID
     Route: 048
     Dates: start: 20110918
  2. THERAPEUTIC-M [Concomitant]
     Dosage: 1 DF, QD
     Route: 048
  3. CIPROFLOXACIN [Concomitant]
     Dosage: 250 MG, BID FOR THREE DAYS
  4. DOLOPHINE HCL [Concomitant]
     Indication: PAIN
     Dosage: 5 MG, TID
     Route: 048
     Dates: start: 20101216, end: 20110917
  5. GILENYA [Suspect]
     Indication: RELAPSING-REMITTING MULTIPLE SCLEROSIS
     Dosage: 0.5 MG, QD
     Route: 048
     Dates: start: 20110916, end: 20111008
  6. MOLINDONE HCL [Concomitant]
     Dosage: 10 MG, BID
  7. MEDROL [Concomitant]
     Dosage: 4 MG, QD
     Dates: start: 20100801
  8. LIORESAL [Concomitant]
     Indication: MUSCLE SPASTICITY
     Dosage: 10 MG, BID
     Route: 048
     Dates: start: 20110916
  9. TEGRETOL-XR [Concomitant]
     Dosage: 100 MG, BID
     Route: 048
     Dates: start: 20101117
  10. SOLU-MEDROL [Concomitant]
     Indication: MULTIPLE SCLEROSIS RELAPSE
     Dosage: 1 G, DAILY
     Route: 042
     Dates: start: 20111005, end: 20111007
  11. REMERON [Concomitant]
     Indication: PAIN
     Dosage: 15 MG, DAILY
     Route: 048
     Dates: start: 20110916
  12. REMERON [Concomitant]
     Indication: DEPRESSION
  13. LYRICA [Concomitant]
     Indication: PAIN
     Dosage: 100 MG, QD FOR FIVE DAYS
     Route: 048
     Dates: start: 20110126
  14. INTEGRAL [Concomitant]
     Dosage: 100 MG, BID
  15. OXYCODONE HCL AND ACETAMINOPHEN [Concomitant]
     Indication: PAIN
     Dosage: 1 DF, EVERY 4-6 HOURS AS NEEDED

REACTIONS (15)
  - SINUS BRADYCARDIA [None]
  - VISION BLURRED [None]
  - ELECTROCARDIOGRAM QT PROLONGED [None]
  - LETHARGY [None]
  - ORTHOSTATIC HYPOTENSION [None]
  - DIZZINESS POSTURAL [None]
  - SOMNOLENCE [None]
  - ARRHYTHMIA [None]
  - VISUAL ACUITY TESTS ABNORMAL [None]
  - NAUSEA [None]
  - ASTHENIA [None]
  - SUPRAVENTRICULAR EXTRASYSTOLES [None]
  - PAIN [None]
  - HYPERTENSION [None]
  - CENTRAL NERVOUS SYSTEM LESION [None]
